FAERS Safety Report 8529120-7 (Version None)
Quarter: 2012Q3

REPORT INFORMATION
  Report Type: 
  Country: None (occurrence: None)
  Receive Date: 20120717
  Receipt Date: 20120717
  Transmission Date: 20120928
  Serious: No
  Sender: FDA-Public Use
  Company Number: None

PATIENT

DRUGS (2)
  1. CYCLOPENTOLATE HYDROCHLORIDE [Suspect]
     Dosage: SOLUTION OPHTHALMIC 1% 2 ML
     Route: 047
  2. CYCLOMYDRIL [Suspect]
     Dosage: SOLUTION OPHTHALMIC CYCLOPENTOLATE 0.2% 2 ML
     Route: 047

REACTIONS (2)
  - INTERCEPTED DRUG DISPENSING ERROR [None]
  - DRUG LABEL CONFUSION [None]
